FAERS Safety Report 10027360 (Version 1)
Quarter: 2014Q1

REPORT INFORMATION
  Report Type: Spontaneous
  Country: US (occurrence: None)
  Receive Date: 20140304
  Receipt Date: 20140304
  Transmission Date: 20141002
  Serious: Yes (Hospitalization)
  Sender: FDA-Public Use
  Company Number: AXC-2013-000444

PATIENT
  Age: 65 Year
  Sex: Male

DRUGS (2)
  1. MESALAMINE [Suspect]
     Indication: COLITIS ULCERATIVE
  2. MESALAMINE [Suspect]
     Indication: DIARRHOEA HAEMORRHAGIC

REACTIONS (1)
  - Interstitial lung disease [None]
